FAERS Safety Report 12210640 (Version 1)
Quarter: 2016Q1

REPORT INFORMATION
  Report Type: Spontaneous
  Country: US (occurrence: None)
  Receive Date: 20160324
  Receipt Date: 20160324
  Transmission Date: 20160526
  Serious: Yes (Hospitalization)
  Sender: FDA-Public Use
  Company Number: None

PATIENT
  Age: 67 Year
  Sex: Female
  Weight: 58.97 kg

DRUGS (4)
  1. ZYDELIG [Suspect]
     Active Substance: IDELALISIB
     Indication: B-CELL LYMPHOMA RECURRENT
     Dosage: 150 MG 60 TABLETS TWICE DAILY BY MOUTH
     Route: 048
     Dates: start: 20151107, end: 20160217
  2. BUDESONIDE EC [Concomitant]
     Active Substance: BUDESONIDE
  3. ACYCLOVIR. [Concomitant]
     Active Substance: ACYCLOVIR
  4. LISINOPRIL. [Concomitant]
     Active Substance: LISINOPRIL

REACTIONS (2)
  - Diarrhoea [None]
  - Dehydration [None]

NARRATIVE: CASE EVENT DATE: 20160217
